FAERS Safety Report 25826898 (Version 1)
Quarter: 2025Q3

REPORT INFORMATION
  Report Type: Report from Study
  Country: EU (occurrence: EU)
  Receive Date: 20250920
  Receipt Date: 20250920
  Transmission Date: 20251021
  Serious: Yes (Hospitalization)
  Sender: ABBVIE
  Company Number: EU-ABBVIE-6461831

PATIENT
  Age: 34 Year
  Sex: Male

DRUGS (32)
  1. ADALIMUMAB [Suspect]
     Active Substance: ADALIMUMAB
     Indication: Psoriasis
     Route: 058
     Dates: start: 20211104, end: 20211111
  2. ADALIMUMAB [Suspect]
     Active Substance: ADALIMUMAB
     Route: 058
     Dates: start: 20211111, end: 20220623
  3. CALCIPOTRIENE [Concomitant]
     Active Substance: CALCIPOTRIENE
     Indication: Psoriasis
     Dosage: 50 MCG?TOPICAL SPRAY
     Dates: start: 20181220
  4. ACETAMINOPHEN\CODEINE PHOSPHATE [Concomitant]
     Active Substance: ACETAMINOPHEN\CODEINE PHOSPHATE
     Indication: Pharyngitis
     Route: 048
     Dates: start: 20240408, end: 20240413
  5. DEXTROMETHORPHAN HYDROBROMIDE [Concomitant]
     Active Substance: DEXTROMETHORPHAN HYDROBROMIDE
     Indication: Nasopharyngitis
     Dates: start: 20240720, end: 20240726
  6. DEXCHLORPHENIRAMINE MALEATE [Concomitant]
     Active Substance: DEXCHLORPHENIRAMINE MALEATE
     Indication: Nasopharyngitis
     Route: 048
     Dates: start: 20240720, end: 20240726
  7. BETAMETHASONE [Concomitant]
     Active Substance: BETAMETHASONE
     Indication: Psoriasis
     Dosage: 500 MCG?TOPICAL SPRAY
  8. DEXKETOPROFEN [Concomitant]
     Active Substance: DEXKETOPROFEN
     Indication: Pain
     Route: 048
     Dates: start: 20200421
  9. ACETAMINOPHEN [Concomitant]
     Active Substance: ACETAMINOPHEN
     Indication: Nasopharyngitis
     Route: 048
     Dates: start: 20240408, end: 20240413
  10. ACETAMINOPHEN [Concomitant]
     Active Substance: ACETAMINOPHEN
     Indication: Nasopharyngitis
     Route: 048
     Dates: start: 20231214, end: 20231226
  11. ACETAMINOPHEN [Concomitant]
     Active Substance: ACETAMINOPHEN
     Indication: Nasopharyngitis
     Route: 048
     Dates: start: 20240207, end: 20240220
  12. ACETAMINOPHEN [Concomitant]
     Active Substance: ACETAMINOPHEN
     Indication: Nasopharyngitis
     Route: 048
     Dates: start: 20240414, end: 20240415
  13. CODEINE [Concomitant]
     Active Substance: CODEINE
     Indication: Nasopharyngitis
     Route: 048
     Dates: start: 20231214, end: 20231226
  14. CODEINE [Concomitant]
     Active Substance: CODEINE
     Indication: Nasopharyngitis
     Route: 048
     Dates: start: 20240408, end: 20240415
  15. ASCORBIC ACID [Concomitant]
     Active Substance: ASCORBIC ACID
     Indication: Nasopharyngitis
     Route: 048
     Dates: start: 20240408, end: 20240413
  16. ASCORBIC ACID [Concomitant]
     Active Substance: ASCORBIC ACID
     Indication: Nasopharyngitis
     Route: 048
     Dates: start: 20231214, end: 20231226
  17. ASCORBIC ACID [Concomitant]
     Active Substance: ASCORBIC ACID
     Indication: Nasopharyngitis
     Route: 048
     Dates: start: 20240414, end: 20240415
  18. DEFLAZACORT [Concomitant]
     Active Substance: DEFLAZACORT
     Indication: Bronchitis
     Route: 048
     Dates: start: 20231216, end: 20231226
  19. ALBUTEROL [Concomitant]
     Active Substance: ALBUTEROL
     Indication: Bronchitis
     Dates: start: 20231216, end: 20231226
  20. AMOXICILLIN [Concomitant]
     Active Substance: AMOXICILLIN
     Indication: Bronchitis
     Route: 048
     Dates: start: 20231218, end: 20231225
  21. TILDRAKIZUMAB [Suspect]
     Active Substance: TILDRAKIZUMAB
     Indication: Product used for unknown indication
     Route: 048
     Dates: start: 20220623, end: 20220723
  22. TILDRAKIZUMAB [Suspect]
     Active Substance: TILDRAKIZUMAB
     Indication: Product used for unknown indication
     Route: 048
     Dates: start: 20220723
  23. BISOPROLOL [Concomitant]
     Active Substance: BISOPROLOL
     Indication: Atrial fibrillation
     Route: 048
     Dates: start: 20220712, end: 20230329
  24. BISOPROLOL [Concomitant]
     Active Substance: BISOPROLOL
     Indication: Atrial fibrillation
     Route: 048
     Dates: start: 20230330
  25. ACETYLCYSTEINE [Concomitant]
     Active Substance: ACETYLCYSTEINE
     Indication: Bronchitis
     Route: 048
     Dates: start: 20231218, end: 20231225
  26. CLOPERASTINE [Concomitant]
     Active Substance: CLOPERASTINE
     Indication: Bronchitis
     Route: 048
     Dates: start: 20231226, end: 20231231
  27. RETINOL [Concomitant]
     Active Substance: RETINOL
     Indication: Bronchitis
     Dosage: 50.00 MILESIU
     Route: 048
     Dates: start: 20231226, end: 20240104
  28. IBUPROFEN [Concomitant]
     Active Substance: IBUPROFEN
     Indication: Tonsillitis
     Route: 048
     Dates: start: 20240207, end: 20240220
  29. AMOXICILLIN [Concomitant]
     Active Substance: AMOXICILLIN
     Indication: Purulence
     Route: 048
     Dates: start: 20240207, end: 20240217
  30. CLAVULANIC ACID [Concomitant]
     Active Substance: CLAVULANIC ACID
     Indication: Purulence
     Route: 048
     Dates: start: 20240207, end: 20240217
  31. Mepiphylline [Concomitant]
     Indication: Pharyngitis
     Route: 048
     Dates: start: 20240408, end: 20240413
  32. Mepiphylline [Concomitant]
     Indication: Pharyngitis
     Route: 048
     Dates: start: 20240414, end: 20240415

REACTIONS (3)
  - Pulmonary hilum mass [Recovered/Resolved]
  - Atrial fibrillation [Recovered/Resolved]
  - Lymphadenopathy mediastinal [Recovered/Resolved]

NARRATIVE: CASE EVENT DATE: 20220630
